FAERS Safety Report 24593051 (Version 2)
Quarter: 2025Q1

REPORT INFORMATION
  Report Type: Spontaneous
  Country: US (occurrence: US)
  Receive Date: 20241108
  Receipt Date: 20250108
  Transmission Date: 20250409
  Serious: Yes (Death, Life-Threatening, Hospitalization, Other)
  Sender: SANOFI AVENTIS
  Company Number: US-SAKK-2024SA319950AA

PATIENT
  Age: 78 Year
  Sex: Male

DRUGS (2)
  1. DUPILUMAB [Suspect]
     Active Substance: DUPILUMAB
     Indication: Chronic rhinosinusitis with nasal polyps
     Dates: start: 202009
  2. MOMETASONE [Concomitant]
     Active Substance: MOMETASONE
     Indication: Chronic rhinosinusitis with nasal polyps
     Route: 045
     Dates: start: 202009

REACTIONS (12)
  - Acanthamoeba infection [Fatal]
  - Skin lesion [Fatal]
  - Pain of skin [Fatal]
  - Skin mass [Fatal]
  - Skin ulcer [Fatal]
  - Eschar [Fatal]
  - Failure to thrive [Fatal]
  - Leukocytosis [Fatal]
  - Encephalitis protozoal [Fatal]
  - Delirium [Fatal]
  - Neurological decompensation [Fatal]
  - Multiple organ dysfunction syndrome [Fatal]

NARRATIVE: CASE EVENT DATE: 20230101
